FAERS Safety Report 5981612-0 (Version None)
Quarter: 2008Q4

REPORT INFORMATION
  Report Type: 
  Country: None (occurrence: None)
  Receive Date: 20081205
  Receipt Date: 20081124
  Transmission Date: 20090506
  Serious: Yes (Other)
  Sender: FDA-Public Use
  Company Number: US-JNJFOC-20081200289

PATIENT
  Age: 65 Year
  Sex: Female
  Weight: 58.06 kg

DRUGS (8)
  1. EXTRA STRENGTH TYLENOL [Suspect]
     Indication: INSOMNIA
     Route: 048
  2. EXTRA STRENGTH TYLENOL [Suspect]
     Indication: NECK PAIN
     Route: 048
  3. EXTRA STRENGTH TYLENOL [Suspect]
     Indication: BACK PAIN
     Dosage: 5 DOSES EVERY NIGHT
     Route: 048
  4. HYDROCODONE BITARTRATE [Concomitant]
  5. ARICEPT [Concomitant]
     Indication: AMNESIA
  6. SPIRONOLACTONE [Concomitant]
  7. MIRTAZAPINE [Concomitant]
     Indication: DEPRESSION
  8. ALPRAZOLAM [Concomitant]
     Indication: ANXIETY

REACTIONS (3)
  - AMNESIA [None]
  - INCORRECT DOSE ADMINISTERED [None]
  - THERAPEUTIC RESPONSE DECREASED [None]
